FAERS Safety Report 17389845 (Version 1)
Quarter: 2020Q1

REPORT INFORMATION
  Report Type: Spontaneous
  Country: US (occurrence: US)
  Receive Date: 20200123
  Receipt Date: 20200123
  Transmission Date: 20200409
  Serious: Yes (Death)
  Sender: FDA-Public Use
  Company Number: None

PATIENT
  Age: 57 Year
  Sex: Male

DRUGS (2)
  1. GRANISETRON [Suspect]
     Active Substance: GRANISETRON
     Indication: LIVER DISORDER
     Route: 042
  2. DIPHENHYDRAMINE. [Suspect]
     Active Substance: DIPHENHYDRAMINE
     Indication: BONE CANCER
     Dosage: ?          OTHER FREQUENCY:25MG ON DAY 1,8,15;?
     Route: 042

REACTIONS (1)
  - Death [None]

NARRATIVE: CASE EVENT DATE: 20200111
